FAERS Safety Report 7987366-0 (Version None)
Quarter: 2011Q4

REPORT INFORMATION
  Report Type: 
  Country: None (occurrence: None)
  Receive Date: 20111216
  Receipt Date: 20111024
  Transmission Date: 20120403
  Serious: No
  Sender: FDA-Public Use
  Company Number: US-BRISTOL-MYERS SQUIBB COMPANY-16190357

PATIENT
  Sex: Female

DRUGS (2)
  1. SEROQUEL [Suspect]
     Indication: SOMNOLENCE
  2. ABILIFY [Suspect]
     Dates: start: 20080101

REACTIONS (3)
  - FEELING JITTERY [None]
  - WEIGHT DECREASED [None]
  - TARDIVE DYSKINESIA [None]
